FAERS Safety Report 11039213 (Version 1)
Quarter: 2015Q2

REPORT INFORMATION
  Report Type: Spontaneous
  Country: GB (occurrence: GB)
  Receive Date: 20150416
  Receipt Date: 20150416
  Transmission Date: 20150821
  Serious: Yes (Disabling)
  Sender: FDA-Public Use
  Company Number: GB-PFIZER INC-2015125360

PATIENT
  Age: 47 Year
  Sex: Female

DRUGS (7)
  1. CARBAMAZEPINE. [Concomitant]
     Active Substance: CARBAMAZEPINE
     Indication: TRIGEMINAL NEURALGIA
     Dosage: 800 MG, 2X/DAY
     Route: 048
  2. ADCAL D3 [Concomitant]
     Active Substance: CALCIUM CARBONATE\CHOLECALCIFEROL
     Dosage: UNK
  3. PHENYTOIN. [Suspect]
     Active Substance: PHENYTOIN
     Indication: TRIGEMINAL NEURALGIA
     Dosage: 350 MG, 1X/DAY (NIGHTLY)
     Route: 048
     Dates: start: 20150307, end: 20150330
  4. AMITRIPTYLINE [Concomitant]
     Active Substance: AMITRIPTYLINE
     Indication: TRIGEMINAL NEURALGIA
     Dosage: 30 MG, 1X/DAY (NIGHTLY)
  5. CODEINE [Concomitant]
     Active Substance: CODEINE
     Indication: PAIN
     Dosage: 30-60 MG FOUR TIMES DAILY
     Route: 048
  6. PARACETAMOL [Concomitant]
     Active Substance: ACETAMINOPHEN
     Indication: PAIN
     Dosage: 1 G, 4X/DAY
     Route: 048
  7. BISOPROLOL [Concomitant]
     Active Substance: BISOPROLOL
     Indication: HYPERTENSION
     Dosage: 2.5 MG, 1X/DAY
     Route: 048

REACTIONS (3)
  - Dizziness [Unknown]
  - Swelling face [Unknown]
  - Lip swelling [Unknown]

NARRATIVE: CASE EVENT DATE: 20150330
